FAERS Safety Report 5750729-8 (Version None)
Quarter: 2008Q2

REPORT INFORMATION
  Report Type: 
  Country: None (occurrence: None)
  Receive Date: 20080528
  Receipt Date: 20080519
  Transmission Date: 20081010
  Serious: Yes (Hospitalization)
  Sender: FDA-Public Use
  Company Number: TW-BRISTOL-MYERS SQUIBB COMPANY-13495841

PATIENT
  Age: 23 Year
  Sex: Female

DRUGS (2)
  1. ABATACEPT [Suspect]
     Indication: SYSTEMIC LUPUS ERYTHEMATOSUS
     Route: 042
     Dates: start: 20060515, end: 20060612
  2. PREDNISOLONE [Suspect]
     Route: 048
     Dates: start: 20060112

REACTIONS (2)
  - SEPSIS [None]
  - SYSTEMIC LUPUS ERYTHEMATOSUS [None]
